FAERS Safety Report 9575781 (Version 1)
Quarter: 2013Q4

REPORT INFORMATION
  Report Type: Spontaneous
  Country: US (occurrence: US)
  Receive Date: 20131001
  Receipt Date: 20131001
  Transmission Date: 20140711
  Serious: No
  Sender: FDA-Public Use
  Company Number: US-AMGEN-USASP2012068239

PATIENT
  Sex: Female

DRUGS (1)
  1. EPOGEN [Suspect]
     Indication: RENAL FAILURE CHRONIC
     Dosage: UNK UNK, 3 TIMES/WK
     Route: 058

REACTIONS (2)
  - Malaise [Unknown]
  - Bone pain [Unknown]
